FAERS Safety Report 5476456-2 (Version None)
Quarter: 2007Q4

REPORT INFORMATION
  Report Type: 
  Country: None (occurrence: None)
  Receive Date: 20071003
  Receipt Date: 20070925
  Transmission Date: 20080405
  Serious: Yes (Other)
  Sender: FDA-Public Use
  Company Number: US-PFIZER INC-2007081455

PATIENT
  Sex: Female
  Weight: 88.181 kg

DRUGS (2)
  1. CHANTIX [Suspect]
     Indication: SMOKING CESSATION THERAPY
  2. KLONOPIN [Concomitant]

REACTIONS (7)
  - ANGER [None]
  - ANXIETY [None]
  - BLOOD PRESSURE DIASTOLIC INCREASED [None]
  - BLOOD URINE PRESENT [None]
  - INSOMNIA [None]
  - IRRITABILITY [None]
  - POLLAKIURIA [None]
